FAERS Safety Report 9884439 (Version 4)
Quarter: 2014Q1

REPORT INFORMATION
  Report Type: Report from Study
  Country: DE (occurrence: DE)
  Receive Date: 20140210
  Receipt Date: 20140317
  Transmission Date: 20141002
  Serious: Yes (Life-Threatening, Hospitalization, Other)
  Sender: FDA-Public Use
  Company Number: DE-ASTELLAS-2014US001146

PATIENT
  Age: 69 Year
  Sex: Male
  Weight: 63 kg

DRUGS (2)
  1. ERLOTINIB TABLET [Suspect]
     Indication: PANCREATIC CARCINOMA
     Dosage: 50 MG, UID/QD
     Route: 048
     Dates: start: 20140117
  2. GEMCITABINE /01215702/ [Suspect]
     Indication: PANCREATIC CARCINOMA
     Dosage: 1368 MG, (IN 1,2 AND 3 WEEK)
     Route: 042
     Dates: start: 20140110

REACTIONS (7)
  - Incorrect dose administered [Unknown]
  - Renal failure [Unknown]
  - Infection [Unknown]
  - Cardiac failure [Recovered/Resolved]
  - Febrile neutropenia [Recovered/Resolved]
  - Performance status decreased [Unknown]
  - Dyspnoea [Recovered/Resolved with Sequelae]
